FAERS Safety Report 8024545-0 (Version None)
Quarter: 2012Q1

REPORT INFORMATION
  Report Type: 
  Country: None (occurrence: None)
  Receive Date: 20120103
  Receipt Date: 20111222
  Transmission Date: 20120608
  Serious: Yes (Other)
  Sender: FDA-Public Use
  Company Number: 2011MA018066

PATIENT
  Age: 59 Year
  Sex: Male

DRUGS (6)
  1. RAMIPRIL [Concomitant]
  2. ACTOS [Concomitant]
  3. TRAMADOL HYDROCHLORIDE [Suspect]
     Indication: ARTHRALGIA
     Dosage: 100 MG;QID;PO
     Route: 048
  4. METFORMIN HCL [Concomitant]
  5. AMLODIPINE [Concomitant]
  6. PRAVASTATIN [Concomitant]

REACTIONS (2)
  - PRODUCT QUALITY ISSUE [None]
  - DRUG INEFFECTIVE [None]
